FAERS Safety Report 12405802 (Version 2)
Quarter: 2016Q2

REPORT INFORMATION
  Report Type: Spontaneous
  Country: FR (occurrence: FR)
  Receive Date: 20160526
  Receipt Date: 20160603
  Transmission Date: 20160815
  Serious: Yes (Life-Threatening, Hospitalization, Other)
  Sender: FDA-Public Use
  Company Number: FR-BRISTOL-MYERS SQUIBB COMPANY-BMS-2016-039936

PATIENT
  Age: 53 Year
  Sex: Male

DRUGS (6)
  1. ABILIFY [Interacting]
     Active Substance: ARIPIPRAZOLE
     Dosage: 15 MG, QD
     Route: 048
  2. XEROQUEL [Suspect]
     Active Substance: QUETIAPINE FUMARATE
     Indication: DELUSION
     Dosage: 2 TAB, QD
     Route: 048
     Dates: start: 20151230
  3. XEROQUEL [Suspect]
     Active Substance: QUETIAPINE FUMARATE
     Dosage: UNK
     Route: 048
     Dates: end: 20160211
  4. ABILIFY [Interacting]
     Active Substance: ARIPIPRAZOLE
     Dosage: 10 MG, BID
     Route: 048
     Dates: start: 20160331, end: 20160424
  5. CLOZAPINE. [Interacting]
     Active Substance: CLOZAPINE
     Indication: DELUSION
     Dosage: 200 MG, BID
     Route: 048
     Dates: start: 20151230, end: 20160424
  6. ABILIFY [Suspect]
     Active Substance: ARIPIPRAZOLE
     Indication: DELUSION
     Dosage: 10 MG, QD
     Route: 048
     Dates: start: 20160211

REACTIONS (17)
  - Hyperthermia [Recovered/Resolved]
  - Blood creatine phosphokinase increased [Recovered/Resolved]
  - Pneumonia aspiration [Not Recovered/Not Resolved]
  - Psychiatric decompensation [Recovered/Resolved]
  - Neuroleptic malignant syndrome [Recovered/Resolved]
  - Condition aggravated [Recovered/Resolved]
  - Septic shock [Unknown]
  - Delirium [Recovered/Resolved]
  - Extrapyramidal disorder [Recovered/Resolved]
  - Acute kidney injury [Unknown]
  - Overdose [Unknown]
  - Off label use [Unknown]
  - Catatonia [Recovered/Resolved]
  - Psychomotor retardation [Recovered/Resolved]
  - Salivary hypersecretion [Recovered/Resolved]
  - Respiratory failure [Unknown]
  - Drug interaction [Unknown]

NARRATIVE: CASE EVENT DATE: 20160423
